FAERS Safety Report 10917854 (Version 4)
Quarter: 2015Q2

REPORT INFORMATION
  Report Type: Spontaneous
  Country: JP (occurrence: JP)
  Receive Date: 20150316
  Receipt Date: 20150414
  Transmission Date: 20150821
  Serious: Yes (Hospitalization, Other)
  Sender: FDA-Public Use
  Company Number: JP-GLAXOSMITHKLINE-JP2015JPN023633

PATIENT
  Age: 18 Year
  Sex: Female

DRUGS (2)
  1. DEPAKENE [Concomitant]
     Active Substance: VALPROIC ACID
  2. LAMICTAL [Suspect]
     Active Substance: LAMOTRIGINE
     Indication: EPILEPSY
     Dosage: 25 MG, QD
     Route: 048
     Dates: start: 20141008, end: 20141028

REACTIONS (17)
  - Ocular hyperaemia [Unknown]
  - Scab [Unknown]
  - Pneumonia mycoplasmal [Unknown]
  - Lip erosion [Unknown]
  - Erythema of eyelid [Unknown]
  - Corneal disorder [Unknown]
  - Conjunctival disorder [Unknown]
  - Epidermal necrosis [Unknown]
  - Erythema multiforme [Unknown]
  - Vulval disorder [Unknown]
  - Stevens-Johnson syndrome [Recovered/Resolved]
  - Dermatitis bullous [Unknown]
  - Hypophagia [Unknown]
  - Erythema [Unknown]
  - Pyrexia [Unknown]
  - Skin degenerative disorder [Unknown]
  - Lip swelling [Unknown]

NARRATIVE: CASE EVENT DATE: 20141020
